FAERS Safety Report 16066801 (Version 1)
Quarter: 2019Q1

REPORT INFORMATION
  Report Type: Spontaneous
  Country: US (occurrence: US)
  Receive Date: 20190313
  Receipt Date: 20190313
  Transmission Date: 20190418
  Serious: No
  Sender: FDA-Public Use
  Company Number: US-AMGEN-USASP2019037247

PATIENT
  Age: 57 Year
  Sex: Male

DRUGS (6)
  1. ENBREL [Suspect]
     Active Substance: ETANERCEPT
     Indication: RHEUMATOID ARTHRITIS
     Dosage: 50 MILLIGRAM, QWK
     Route: 058
  2. HYDROCODONE [Concomitant]
     Active Substance: HYDROCODONE
     Dosage: UNK (10-300) MILLIGRAM
  3. ENBREL [Suspect]
     Active Substance: ETANERCEPT
     Dosage: 50 MILLIGRAM, QWK
     Route: 058
  4. GABAPENTIN. [Concomitant]
     Active Substance: GABAPENTIN
     Dosage: 800 MILLIGRAM
  5. AMITRIPTYLIN [Concomitant]
     Active Substance: AMITRIPTYLINE
     Dosage: 100 MILLIGRAM
  6. BACLOFEN. [Concomitant]
     Active Substance: BACLOFEN
     Dosage: 20 MILLIGRAM

REACTIONS (3)
  - Therapy non-responder [Not Recovered/Not Resolved]
  - Disturbance in attention [Not Recovered/Not Resolved]
  - Depressed mood [Not Recovered/Not Resolved]
